FAERS Safety Report 10243446 (Version 1)
Quarter: 2014Q2

REPORT INFORMATION
  Report Type: Spontaneous
  Country: US (occurrence: None)
  Receive Date: 20140616
  Receipt Date: 20140616
  Transmission Date: 20141212
  Serious: Yes (Disabling)
  Sender: FDA-Public Use
  Company Number: None

PATIENT
  Age: 57 Year
  Sex: Male
  Weight: 104.33 kg

DRUGS (1)
  1. PODIAPN [Suspect]
     Indication: BLOOD DISORDER
     Route: 048
     Dates: start: 20130708, end: 20131005

REACTIONS (2)
  - Ageusia [None]
  - Anosmia [None]
